FAERS Safety Report 10359381 (Version 1)
Quarter: 2014Q3

REPORT INFORMATION
  Report Type: Spontaneous
  Country: US (occurrence: US)
  Receive Date: 20140804
  Receipt Date: 20140804
  Transmission Date: 20150326
  Serious: Yes (Other)
  Sender: FDA-Public Use
  Company Number: US-AMGEN-USASP2014057237

PATIENT
  Sex: Female
  Weight: 58.5 kg

DRUGS (1)
  1. PROLIA [Suspect]
     Active Substance: DENOSUMAB
     Indication: OSTEOPOROSIS POSTMENOPAUSAL
     Dosage: UNK
     Route: 065

REACTIONS (16)
  - Spinal deformity [Unknown]
  - Cardiac failure congestive [Unknown]
  - Back pain [Unknown]
  - Dyspnoea [Unknown]
  - Dyspepsia [Unknown]
  - Hypertension [Unknown]
  - Anxiety [Unknown]
  - Myocardial infarction [Unknown]
  - Blood calcium decreased [Unknown]
  - Vitamin D decreased [Unknown]
  - Depression [Unknown]
  - Chronic obstructive pulmonary disease [Unknown]
  - Oestrogen deficiency [Unknown]
  - Tobacco user [Unknown]
  - Gastrointestinal disorder [Unknown]
  - Dental operation [Unknown]
